FAERS Safety Report 8604524 (Version 2)
Quarter: 2012Q4

REPORT INFORMATION
  Report Type: 
  Country: US (occurrence: US)
  Receive Date: 20120608
  Receipt Date: 20121204
  Transmission Date: 20130627
  Serious: Yes (Other)
  Sender: FDA-Public Use
  Company Number: PHEH2012US011497

PATIENT
  Age: 61 Year
  Sex: Male

DRUGS (1)
  1. AREDIA [Suspect]

REACTIONS (6)
  - Sinusitis [Unknown]
  - Systolic hypertension [Unknown]
  - Hepatic steatosis [Unknown]
  - Osteoarthritis [Unknown]
  - Spinal osteoarthritis [Unknown]
  - Peroneal nerve palsy [Unknown]
